FAERS Safety Report 13207557 (Version 1)
Quarter: 2017Q1

REPORT INFORMATION
  Report Type: Spontaneous
  Country: US (occurrence: US)
  Receive Date: 20170209
  Receipt Date: 20170209
  Transmission Date: 20170428
  Serious: No
  Sender: FDA-Public Use
  Company Number: US-SA-2017SA006268

PATIENT
  Age: 68 Year
  Sex: Male

DRUGS (14)
  1. PRALUENT [Suspect]
     Active Substance: ALIROCUMAB
     Route: 058
     Dates: start: 201608
  2. CLOPIDOGREL [Concomitant]
     Active Substance: CLOPIDOGREL BISULFATE
  3. ZETIA [Concomitant]
     Active Substance: EZETIMIBE
  4. OFLOXACIN. [Concomitant]
     Active Substance: OFLOXACIN
  5. NEVANAC [Concomitant]
     Active Substance: NEPAFENAC
  6. VIAGRA [Concomitant]
     Active Substance: SILDENAFIL CITRATE
  7. ALIROCUMAB PREFILLED PEN [Concomitant]
     Active Substance: ALIROCUMAB
  8. RAMIPRIL. [Concomitant]
     Active Substance: RAMIPRIL
  9. ATORVASTATIN CALCIUM. [Concomitant]
     Active Substance: ATORVASTATIN CALCIUM
  10. CHANTIX [Concomitant]
     Active Substance: VARENICLINE TARTRATE
  11. ALIROCUMAB PREFILLED PEN [Concomitant]
     Active Substance: ALIROCUMAB
     Dates: start: 201608
  12. PREDNISOLONE. [Concomitant]
     Active Substance: PREDNISOLONE
  13. PRALUENT [Suspect]
     Active Substance: ALIROCUMAB
     Dosage: FREQUENCY: EVERY 3 WEEKS
     Route: 058
  14. EXCEDRIN [Concomitant]
     Active Substance: ACETAMINOPHEN\ASPIRIN\CAFFEINE

REACTIONS (2)
  - Off label use [Unknown]
  - Visual impairment [Unknown]
